FAERS Safety Report 4504516-9 (Version None)
Quarter: 2004Q4

REPORT INFORMATION
  Report Type: 
  Country: None (occurrence: None)
  Receive Date: 20041118
  Receipt Date: 20041019
  Transmission Date: 20050328
  Serious: Yes (Hospitalization)
  Sender: FDA-Public Use
  Company Number: JP-BRISTOL-MYERS SQUIBB COMPANY-12742037

PATIENT
  Age: 61 Year
  Sex: Female

DRUGS (3)
  1. PRAVASTATIN [Suspect]
     Indication: HYPERLIPIDAEMIA
     Route: 048
     Dates: start: 20021001, end: 20041018
  2. TOMIRON [Suspect]
     Indication: GINGIVITIS
     Route: 048
     Dates: start: 20041015, end: 20041017
  3. LEFTOSE [Concomitant]
     Indication: HYPERLIPIDAEMIA
     Dates: start: 20041015, end: 20041017

REACTIONS (4)
  - CYTOMEGALOVIRUS HEPATITIS [None]
  - HEPATIC FUNCTION ABNORMAL [None]
  - PYREXIA [None]
  - TACHYCARDIA [None]
